FAERS Safety Report 8499875-9 (Version None)
Quarter: 2012Q3

REPORT INFORMATION
  Report Type: 
  Country: None (occurrence: None)
  Receive Date: 20120710
  Receipt Date: 20120629
  Transmission Date: 20120928
  Serious: Yes (Hospitalization)
  Sender: FDA-Public Use
  Company Number: JP-VERTEX PHARMACEUTICALS INC.-AE-2012-009483

PATIENT
  Age: 49 Year
  Sex: Female

DRUGS (7)
  1. RIBAVIRIN [Concomitant]
     Indication: HEPATITIS C
     Route: 048
     Dates: start: 20120609, end: 20120617
  2. NEOMALLERMIN-TR [Concomitant]
     Route: 048
     Dates: start: 20120614
  3. OLOPATADINE HCL [Concomitant]
     Route: 048
     Dates: start: 20120612
  4. SUPLATAST TOSILATE [Concomitant]
     Route: 048
     Dates: start: 20120614
  5. TELAVIC (TELAPREVIR) [Suspect]
     Indication: HEPATITIS C
     Route: 048
     Dates: start: 20120609
  6. RIBAVIRIN [Concomitant]
     Route: 048
     Dates: start: 20120618
  7. PEGINTERFERON ALFA-2B [Concomitant]
     Indication: HEPATITIS C
     Route: 058
     Dates: start: 20120609

REACTIONS (1)
  - DRUG ERUPTION [None]
